FAERS Safety Report 11450617 (Version 1)
Quarter: 2015Q3

REPORT INFORMATION
  Report Type: Spontaneous
  Country: GB (occurrence: GB)
  Receive Date: 20150903
  Receipt Date: 20150903
  Transmission Date: 20151125
  Serious: Yes (Other)
  Sender: FDA-Public Use
  Company Number: GB-TEVA-589288ACC

PATIENT
  Age: 60 Year
  Sex: Female
  Weight: 65.77 kg

DRUGS (1)
  1. PREDNISOLONE. [Suspect]
     Active Substance: PREDNISOLONE
     Indication: NEURODERMATITIS
     Dosage: 4 TIMES PER DAY FOR 2 WEEKS, REDUCING TO 3 TIMES FOR 1 WEEK, AND THEN 2 DAILY.
     Route: 048
     Dates: start: 20150803

REACTIONS (1)
  - Arthralgia [Not Recovered/Not Resolved]
